FAERS Safety Report 5027014-5 (Version None)
Quarter: 2006Q2

REPORT INFORMATION
  Report Type: 
  Country: None (occurrence: None)
  Receive Date: 20060615
  Receipt Date: 20060606
  Transmission Date: 20061013
  Serious: Yes (Hospitalization)
  Sender: FDA-Public Use
  Company Number: FR-BRISTOL-MYERS SQUIBB COMPANY-13402235

PATIENT
  Age: 76 Year
  Sex: Female
  Weight: 56 kg

DRUGS (11)
  1. ELISOR TABS 20 MG [Suspect]
     Indication: LIPID METABOLISM DISORDER
     Route: 048
  2. LEVOTHYROX [Suspect]
  3. SINTROM [Suspect]
  4. AMIODARONE HCL [Suspect]
  5. DIGOXIN [Suspect]
  6. NOROXIN [Suspect]
     Dates: start: 20060413, end: 20060416
  7. DEPAMIDE [Concomitant]
  8. CITALOPRAM HYDROBROMIDE [Concomitant]
  9. SERESTA [Concomitant]
  10. OLMIFON [Concomitant]
  11. ATARAX [Concomitant]

REACTIONS (2)
  - HAEMATURIA [None]
  - HAEMOLYTIC ANAEMIA [None]
